FAERS Safety Report 7641823-5 (Version None)
Quarter: 2011Q3

REPORT INFORMATION
  Report Type: 
  Country: None (occurrence: None)
  Receive Date: 20110728
  Receipt Date: 20110721
  Transmission Date: 20111222
  Serious: Yes (Other)
  Sender: FDA-Public Use
  Company Number: US-JNJFOC-20110404504

PATIENT
  Age: 54 Year
  Sex: Male

DRUGS (6)
  1. BUPRENORPHINE [Suspect]
     Indication: ANALGESIC THERAPY
     Route: 065
  2. COUMADIN [Concomitant]
     Indication: ANTICOAGULANT THERAPY
     Route: 065
  3. ULTRAM [Suspect]
     Indication: ANALGESIC THERAPY
     Route: 048
     Dates: start: 20110301
  4. CARDIAC MEDICATIONS [Concomitant]
     Indication: CHEST PAIN
     Route: 065
  5. NUCYNTA [Suspect]
     Indication: ANALGESIC THERAPY
     Route: 048
     Dates: start: 20100301, end: 20110201
  6. MARIJUANA [Concomitant]

REACTIONS (1)
  - ATRIAL FIBRILLATION [None]
